FAERS Safety Report 5400740-1 (Version None)
Quarter: 2007Q3

REPORT INFORMATION
  Report Type: 
  Country: None (occurrence: None)
  Receive Date: 20070730
  Receipt Date: 20070719
  Transmission Date: 20080115
  Serious: No
  Sender: FDA-Public Use
  Company Number: JP-PFIZER INC-2007055962

PATIENT
  Age: 50 Year
  Sex: Female

DRUGS (7)
  1. LIPITOR [Suspect]
     Indication: HYPERCHOLESTEROLAEMIA
     Dosage: DAILY DOSE:5MG
     Route: 048
  2. NORVASC [Suspect]
     Indication: HYPERTENSION
     Dosage: DAILY DOSE:2.5MG
     Route: 048
  3. METHYCOBAL [Concomitant]
     Route: 048
  4. ALINAMIN F [Concomitant]
  5. EBASTEL [Concomitant]
     Route: 048
  6. LANSOPRAZOLE [Concomitant]
     Route: 048
  7. DEPAS [Concomitant]
     Route: 048

REACTIONS (1)
  - FACIAL SPASM [None]
